FAERS Safety Report 18239589 (Version 1)
Quarter: 2020Q3

REPORT INFORMATION
  Report Type: Spontaneous
  Country: CN (occurrence: CN)
  Receive Date: 20200907
  Receipt Date: 20200907
  Transmission Date: 20201103
  Serious: Yes (Hospitalization)
  Sender: FDA-Public Use
  Company Number: CN-BAXTER-2020BAX018102

PATIENT
  Age: 4 Year
  Sex: Female
  Weight: 18.1 kg

DRUGS (7)
  1. ONDANSETRON HYDROCHLORIDE. [Suspect]
     Active Substance: ONDANSETRON HYDROCHLORIDE
     Indication: ANTIEMETIC SUPPORTIVE CARE
     Dosage: ONDANSETRON HYDROCHLORIDE 3.6 MG + 0.9% NS 25ML
     Route: 041
     Dates: start: 20200815, end: 20200819
  2. 0.9% SODIUM CHLORIDE INJECTION [Suspect]
     Active Substance: SODIUM CHLORIDE
     Dosage: ONDANSETRON HYDROCHLORIDE 3.6 MG + 0.9% NS 25ML
     Route: 041
     Dates: start: 20200815, end: 20200819
  3. 0.9% SODIUM CHLORIDE INJECTION [Suspect]
     Active Substance: SODIUM CHLORIDE
     Indication: MEDICATION DILUTION
     Dosage: CYCLOPHOSPHAMIDE + 0.9% NS 43 ML, DAY 1 ? 5
     Route: 041
     Dates: start: 20200815, end: 20200819
  4. PAZUFLOXACIN SODIUM CHLORIDE [Suspect]
     Active Substance: PAZUFLOXACIN
     Indication: PROPHYLAXIS
     Dosage: BEFORE AND AFTER THE USE OF CYCLOPHOSPHAMIDE
     Route: 042
     Dates: start: 20200815, end: 20200819
  5. 0.9% SODIUM CHLORIDE INJECTION [Suspect]
     Active Substance: SODIUM CHLORIDE
     Dosage: HEMEIXIN 0.54 MG + 0.9% NS 20 ML, DAY 1 ? 5
     Route: 041
     Dates: start: 20200815, end: 20200819
  6. ENDOXAN [Suspect]
     Active Substance: CYCLOPHOSPHAMIDE
     Indication: NEUROBLASTOMA RECURRENT
     Dosage: CYCLOPHOSPHAMIDE + 0.9% NS 43 ML, DAY 1 ? 5
     Route: 041
     Dates: start: 20200815, end: 20200819
  7. HEMEIXIN [Suspect]
     Active Substance: TOPOTECAN HYDROCHLORIDE
     Indication: NEUROBLASTOMA RECURRENT
     Dosage: HEMEIXIN 0.54 MG + 0.9% NS 20 ML, DAY 1 ? 5
     Route: 041
     Dates: start: 20200815, end: 20200819

REACTIONS (1)
  - Pancytopenia [Recovering/Resolving]

NARRATIVE: CASE EVENT DATE: 20200820
